FAERS Safety Report 7269558-1 (Version None)
Quarter: 2011Q1

REPORT INFORMATION
  Report Type: 
  Country: None (occurrence: None)
  Receive Date: 20110124
  Receipt Date: 20101231
  Transmission Date: 20110831
  Serious: Yes (Death)
  Sender: FDA-Public Use
  Company Number: AUR-APL-2010-00020

PATIENT
  Age: 59 Year
  Sex: Female

DRUGS (10)
  1. LAMOTRIGINE [Suspect]
     Dosage: -ORAL
     Route: 048
  2. CLONIDINE [Suspect]
     Dosage: -ORAL
     Route: 048
  3. HYDROCODONE BITARTRATE AND ACETAMINOPHEN [Suspect]
     Dosage: -ORAL
     Route: 048
  4. SERTRALINE [Suspect]
     Dosage: -ORAL
     Route: 048
  5. PROMETHAZINE [Suspect]
     Dosage: -ORAL
     Route: 048
  6. LEVOTHYROXINE SODIUM [Suspect]
     Dosage: -ORAL
     Route: 048
  7. FENOFIBRATE [Suspect]
     Dosage: -ORAL
     Route: 048
  8. AMLODIPINE BESYLATE [Suspect]
     Dosage: -ORAL
     Route: 048
  9. TRANDOLAPRIL/VERAPAMIL [Suspect]
     Dosage: -ORAL
     Route: 048
  10. EZETIMIBE/SIMVASTATIN [Suspect]
     Dosage: -ORAL
     Route: 048

REACTIONS (2)
  - COMPLETED SUICIDE [None]
  - TOXICITY TO VARIOUS AGENTS [None]
